FAERS Safety Report 9485856 (Version 3)
Quarter: 2013Q3

REPORT INFORMATION
  Report Type: Report from Study
  Country: MX (occurrence: MX)
  Receive Date: 20130829
  Receipt Date: 20130930
  Transmission Date: 20140515
  Serious: Yes (Death)
  Sender: FDA-Public Use
  Company Number: PHHY2013MX086641

PATIENT
  Age: 18 Year
  Sex: Female

DRUGS (1)
  1. TRILEPTAL [Suspect]
     Indication: EPILEPSY
     Dosage: 300 MG, TID
     Route: 048

REACTIONS (3)
  - Cardio-respiratory arrest [Fatal]
  - Epilepsy [Fatal]
  - Drug ineffective [Fatal]
